FAERS Safety Report 4651010-0 (Version None)
Quarter: 2005Q2

REPORT INFORMATION
  Report Type: 
  Country: None (occurrence: None)
  Receive Date: 20050429
  Receipt Date: 20050419
  Transmission Date: 20051028
  Serious: Yes (Other)
  Sender: FDA-Public Use
  Company Number: 2005062165

PATIENT
  Sex: Male

DRUGS (11)
  1. LIPITOR [Suspect]
     Indication: BLOOD CHOLESTEROL INCREASED
     Dosage: 10 MG (10 MG, 1 IN 1 D), ORAL
     Route: 048
  2. ASCORBIC ACID [Concomitant]
  3. ANTIGLAUCOMA PREPARATIONS AND MIOTICS (ANTIGLAUCOMA PREPARATIONS AND M [Concomitant]
  4. DILTIAZEM HYDROCHLORIDE [Concomitant]
  5. FENOFIBRATE [Concomitant]
  6. ENALAPRIL MALEATE [Concomitant]
  7. BECOSYM FORTE (NICOTINAMIDE, PYRIDOXINE HYDROCHORIDE, RIBOFLAVIN, THIA [Concomitant]
  8. TOCOPHEROL (TOCOPHEROL) [Concomitant]
  9. CENTRUM (MINERALS NOS, VITAMINS NOS) [Concomitant]
  10. UBIDECARENONE (UBIDECARENONE) [Concomitant]
  11. NICOTINIC ACID [Concomitant]

REACTIONS (13)
  - ASTHENIA [None]
  - CORONARY ARTERY OCCLUSION [None]
  - FALL [None]
  - FEELING ABNORMAL [None]
  - GAIT DISTURBANCE [None]
  - LIMB DISCOMFORT [None]
  - MOVEMENT DISORDER [None]
  - MUSCLE SPASMS [None]
  - MUSCLE TIGHTNESS [None]
  - MYOCARDIAL INFARCTION [None]
  - NERVE COMPRESSION [None]
  - POST POLIO SYNDROME [None]
  - SPINAL DISORDER [None]
